FAERS Safety Report 23347521 (Version 5)
Quarter: 2024Q1

REPORT INFORMATION
  Report Type: Spontaneous
  Country: US (occurrence: US)
  Receive Date: 20231228
  Receipt Date: 20240215
  Transmission Date: 20240409
  Serious: No
  Sender: FDA-Public Use
  Company Number: US-PFIZER INC-PV202300208748

PATIENT
  Age: 61 Year
  Sex: Female

DRUGS (2)
  1. BRAFTOVI [Suspect]
     Active Substance: ENCORAFENIB
     Indication: Metastatic neoplasm
     Dosage: 3 CAPSULES OF 75 MG
     Route: 048
  2. MEKTOVI [Suspect]
     Active Substance: BINIMETINIB
     Indication: Metastatic neoplasm
     Dosage: TAKE 2 TABLETS OF 15 MG; TAKE DOSES ABOUT 10-12 HOURS APART
     Route: 048

REACTIONS (2)
  - Pyrexia [Unknown]
  - Off label use [Unknown]
